FAERS Safety Report 22155116 (Version 1)
Quarter: 2023Q1

REPORT INFORMATION
  Report Type: Spontaneous
  Country: US (occurrence: None)
  Receive Date: 20230329
  Receipt Date: 20230329
  Transmission Date: 20230418
  Serious: Yes (Other)
  Sender: FDA-Public Use
  Company Number: None

PATIENT
  Age: 61 Year
  Sex: Female
  Weight: 54.45 kg

DRUGS (1)
  1. PIQRAY [Suspect]
     Active Substance: ALPELISIB
     Dosage: FREQUENCY : DAILY;?
     Route: 048
     Dates: start: 20230220, end: 20230302

REACTIONS (7)
  - Diarrhoea [None]
  - Rash [None]
  - Rash [None]
  - Pruritus [None]
  - Stomatitis [None]
  - Skin wound [None]
  - Stevens-Johnson syndrome [None]

NARRATIVE: CASE EVENT DATE: 20230302
